FAERS Safety Report 5965394-4 (Version None)
Quarter: 2008Q4

REPORT INFORMATION
  Report Type: 
  Country: None (occurrence: None)
  Receive Date: 20081125
  Receipt Date: 20081118
  Transmission Date: 20090506
  Serious: Yes (Other)
  Sender: FDA-Public Use
  Company Number: US-JNJFOC-20081006749

PATIENT
  Sex: Male

DRUGS (2)
  1. POLYCITRA K [Suspect]
     Indication: PROPHYLAXIS
     Route: 048
  2. LIPITOR [Concomitant]
     Indication: BLOOD CHOLESTEROL INCREASED
     Route: 048

REACTIONS (2)
  - BLOOD URINE PRESENT [None]
  - NEPHROLITHIASIS [None]
